APPROVED DRUG PRODUCT: AMCINONIDE
Active Ingredient: AMCINONIDE
Strength: 0.1%
Dosage Form/Route: CREAM;TOPICAL
Application: A076229 | Product #001 | TE Code: AB
Applicant: TARO PHARMACEUTICAL INDUSTRIES LTD
Approved: May 31, 2002 | RLD: No | RS: No | Type: RX